FAERS Safety Report 6225908-6 (Version None)
Quarter: 2009Q2

REPORT INFORMATION
  Report Type: 
  Country: None (occurrence: None)
  Receive Date: 20090612
  Receipt Date: 20090501
  Transmission Date: 20091009
  Serious: No
  Sender: FDA-Public Use
  Company Number: US-ABBOTT-09P-163-0571334-00

PATIENT
  Sex: Female
  Weight: 81.72 kg

DRUGS (7)
  1. HUMIRA [Suspect]
     Indication: RHEUMATOID ARTHRITIS
     Dosage: 1 IN 14 DAYS, STARTED EOW
     Route: 058
     Dates: start: 20080822
  2. HUMIRA [Suspect]
     Route: 058
     Dates: end: 20090419
  3. METHOPREDNISOLE [Concomitant]
     Indication: RHEUMATOID ARTHRITIS
     Route: 048
  4. LASIX [Concomitant]
     Indication: FLUID RETENTION
     Route: 048
  5. LEVOTHYROXINE [Concomitant]
     Indication: HYPOTHYROIDISM
     Route: 048
  6. CALCIUM [Concomitant]
     Indication: MEDICAL DIET
     Dosage: UNKNOWN
     Route: 048
  7. LOVAZA [Concomitant]
     Indication: MEDICAL DIET
     Dosage: UNKNOWN
     Route: 048

REACTIONS (2)
  - ARTHRALGIA [None]
  - DRUG INEFFECTIVE [None]
